FAERS Safety Report 10129468 (Version 2)
Quarter: 2014Q2

REPORT INFORMATION
  Report Type: Report from Study
  Country: US (occurrence: US)
  Receive Date: 20140428
  Receipt Date: 20140506
  Transmission Date: 20141212
  Serious: Yes (Other)
  Sender: FDA-Public Use
  Company Number: US-PFIZER INC-2014109524

PATIENT
  Age: 31 Year
  Sex: Female

DRUGS (21)
  1. SUCRALFATE [Concomitant]
     Dosage: UNK
  2. AMBIEN [Concomitant]
     Dosage: UNK
  3. INOTUZUMAB OZOGAMICIN [Suspect]
     Indication: ACUTE LYMPHOCYTIC LEUKAEMIA
     Dosage: 1.8 MG/M2, (C1 ONLY), 1.3 MG/M2 (C2 AND C3) ONCE ON DAY 3
     Route: 042
     Dates: start: 20140104
  4. INOTUZUMAB OZOGAMICIN [Suspect]
     Dosage: 3 MG, (1.3 MG/M2) C2 AND C3 ONCE ON DAY 3 OF ALL CYCLES
     Route: 042
     Dates: end: 20140302
  5. CYCLOPHOSPHAMIDE [Suspect]
     Indication: ACUTE LYMPHOCYTIC LEUKAEMIA
     Dosage: 345 MG, (150MG/M2)
     Route: 042
     Dates: start: 20140102, end: 20140303
  6. VINCRISTINE [Suspect]
     Indication: ACUTE LYMPHOCYTIC LEUKAEMIA
     Dosage: 2 MG, CYCLIC
     Route: 042
     Dates: start: 20140102, end: 20140303
  7. DEXAMETHASONE [Suspect]
     Indication: ACUTE LYMPHOCYTIC LEUKAEMIA
     Dosage: 20 MG, CYCLIC
     Route: 042
     Dates: start: 20140102, end: 20140303
  8. MESNA [Suspect]
     Dosage: 690 MG, CYCLIC (300MG/M2)
  9. MEPRON [Concomitant]
     Dosage: UNK
  10. CASPOFUNGIN [Concomitant]
     Dosage: UNK
  11. LEVAQUIN [Concomitant]
     Dosage: UNK
  12. MAGNESIUM [Concomitant]
     Dosage: UNK
  13. PROTONIX [Concomitant]
     Dosage: UNK
  14. PREDNISONE [Concomitant]
     Dosage: UNK
  15. TACROLIMUS [Concomitant]
     Dosage: UNK
  16. URSODIOL [Concomitant]
     Dosage: UNK
  17. VALTREX [Concomitant]
     Dosage: UNK
  18. ZOFRAN [Concomitant]
     Dosage: UNK
  19. OXYCODONE [Concomitant]
     Dosage: UNK
  20. MIRALAX [Concomitant]
     Dosage: UNK
  21. PHENERGAN [Concomitant]
     Dosage: UNK

REACTIONS (1)
  - Venoocclusive liver disease [Not Recovered/Not Resolved]
